FAERS Safety Report 4949105-7 (Version None)
Quarter: 2006Q1

REPORT INFORMATION
  Report Type: 
  Country: None (occurrence: None)
  Receive Date: 20060321
  Receipt Date: 20060130
  Transmission Date: 20060701
  Serious: Yes (Hospitalization)
  Sender: FDA-Public Use
  Company Number: US-MERCK-0601USA03545

PATIENT
  Age: 45 Year
  Sex: Male
  Weight: 97 kg

DRUGS (1)
  1. VIOXX [Suspect]
     Indication: BACK INJURY
     Route: 048
     Dates: start: 19990101, end: 20040101

REACTIONS (3)
  - HEART INJURY [None]
  - OVERDOSE [None]
  - SUPRAVENTRICULAR TACHYCARDIA [None]
